FAERS Safety Report 15448171 (Version 1)
Quarter: 2018Q3

REPORT INFORMATION
  Report Type: Report from Study
  Country: None (occurrence: US)
  Receive Date: 20180928
  Receipt Date: 20180928
  Transmission Date: 20181010
  Serious: Yes (Death)
  Sender: FDA-Public Use
  Company Number: US-ABBVIE-18K-163-2423606-00

PATIENT
  Sex: Male

DRUGS (2)
  1. VENCLEXTA [Suspect]
     Active Substance: VENETOCLAX
     Indication: ACUTE MYELOID LEUKAEMIA
     Route: 048
     Dates: start: 201805, end: 201805
  2. VENCLEXTA [Suspect]
     Active Substance: VENETOCLAX
     Route: 048
     Dates: start: 20180511, end: 2018

REACTIONS (6)
  - Septic shock [Fatal]
  - Acute myeloid leukaemia [Fatal]
  - Acute respiratory failure [Fatal]
  - Mucormycosis [Fatal]
  - Intentional product use issue [Unknown]
  - Pancytopenia [Fatal]

NARRATIVE: CASE EVENT DATE: 2018
